FAERS Safety Report 8880178 (Version 1)
Quarter: 2012Q4

REPORT INFORMATION
  Report Type: Report from Study
  Country: DE (occurrence: DE)
  Receive Date: 20121101
  Receipt Date: 20121101
  Transmission Date: 20130627
  Serious: Yes (Death)
  Sender: FDA-Public Use
  Company Number: DE-ACTELION-A-US2012-70351

PATIENT
  Age: 70 Year
  Sex: Male

DRUGS (3)
  1. VENTAVIS [Suspect]
     Indication: PULMONARY ARTERIAL HYPERTENSION
     Dosage: 5 mcg, q4hrs
     Route: 055
     Dates: start: 20120407
  2. FUROSEMIDE [Suspect]
  3. XARELTO [Suspect]

REACTIONS (3)
  - Bronchopneumonia [Fatal]
  - Sepsis [Fatal]
  - Multi-organ failure [Fatal]
